FAERS Safety Report 5098845-0 (Version None)
Quarter: 2006Q3

REPORT INFORMATION
  Report Type: 
  Country: None (occurrence: None)
  Receive Date: 20060907
  Receipt Date: 20060901
  Transmission Date: 20061208
  Serious: Yes (Other)
  Sender: FDA-Public Use
  Company Number: BR-BRISTOL-MYERS SQUIBB COMPANY-13496849

PATIENT
  Age: 52 Year
  Sex: Female
  Weight: 67 kg

DRUGS (7)
  1. TAXOL [Suspect]
     Indication: OVARIAN NEOPLASM
     Route: 042
     Dates: start: 20060424
  2. CARBOPLATIN [Suspect]
     Indication: OVARIAN NEOPLASM
     Route: 042
     Dates: start: 20060424
  3. DECADRON [Concomitant]
     Dates: start: 20060424
  4. TAGAMET [Concomitant]
     Dates: start: 20060424
  5. BENADRYL [Concomitant]
     Dates: start: 20060424
  6. KYTRIL [Concomitant]
     Dates: start: 20060424
  7. EMEND [Concomitant]
     Dates: start: 20060424

REACTIONS (7)
  - AGITATION [None]
  - DYSPNOEA [None]
  - HYPERAEMIA [None]
  - HYPERHIDROSIS [None]
  - LARYNGEAL OEDEMA [None]
  - PRURITUS GENERALISED [None]
  - RASH [None]
